FAERS Safety Report 9029922 (Version 2)
Quarter: 2013Q2

REPORT INFORMATION
  Report Type: Report from Study
  Country: US (occurrence: US)
  Receive Date: 20130124
  Receipt Date: 20130419
  Transmission Date: 20140414
  Serious: Yes (Hospitalization, Disabling)
  Sender: FDA-Public Use
  Company Number: US-JNJFOC-20130111592

PATIENT
  Age: 13 Year
  Sex: Male
  Weight: 36.2 kg

DRUGS (7)
  1. REMICADE [Suspect]
     Indication: INFLAMMATORY BOWEL DISEASE
     Route: 042
     Dates: start: 20090701
  2. REMICADE [Suspect]
     Indication: INFLAMMATORY BOWEL DISEASE
     Route: 042
     Dates: start: 20040826
  3. METHOTREXATE [Concomitant]
  4. MULTIVITAMINS [Concomitant]
  5. CALCIUM [Concomitant]
  6. FOLIC ACID [Concomitant]
  7. CIMZIA [Concomitant]

REACTIONS (2)
  - Colitis [Recovered/Resolved]
  - Abscess [Recovered/Resolved]
